FAERS Safety Report 7398137-0 (Version None)
Quarter: 2011Q2

REPORT INFORMATION
  Report Type: 
  Country: None (occurrence: None)
  Receive Date: 20110406
  Receipt Date: 20110324
  Transmission Date: 20111010
  Serious: Yes (Other)
  Sender: FDA-Public Use
  Company Number: GB-WATSON-2011-04090

PATIENT

DRUGS (1)
  1. FENTANYL CITRATE [Suspect]
     Indication: ANALGESIC THERAPY
     Dosage: UNK
     Route: 064

REACTIONS (3)
  - APGAR SCORE LOW [None]
  - BRADYCARDIA FOETAL [None]
  - MATERNAL DRUGS AFFECTING FOETUS [None]
